FAERS Safety Report 19643419 (Version 5)
Quarter: 2021Q3

REPORT INFORMATION
  Report Type: Report from Study
  Country: BR (occurrence: BR)
  Receive Date: 20210731
  Receipt Date: 20210927
  Transmission Date: 20211014
  Serious: Yes (Hospitalization, Other)
  Sender: FDA-Public Use
  Company Number: NVSC2021BR168165

PATIENT
  Age: 64 Year
  Sex: Female
  Weight: 67 kg

DRUGS (9)
  1. PARACETAMOL [Concomitant]
     Active Substance: ACETAMINOPHEN
     Indication: PRODUCT USED FOR UNKNOWN INDICATION
     Dosage: 500 MG, UNKNOWN
     Route: 065
  2. ACETYLSALICYLIC ACID [Suspect]
     Active Substance: ASPIRIN
     Indication: CEREBROVASCULAR ACCIDENT
  3. CICLOSPORIN [Suspect]
     Active Substance: CYCLOSPORINE
     Indication: PSORIATIC ARTHROPATHY
     Dosage: 2 DF, QD
     Route: 048
     Dates: start: 2018, end: 2018
  4. COSENTYX [Concomitant]
     Active Substance: SECUKINUMAB
     Indication: PSORIASIS
     Dosage: 300 MG, QMO (150 MG X 2 PENS)
     Route: 058
  5. ACITRETIN. [Concomitant]
     Active Substance: ACITRETIN
     Indication: PSORIATIC ARTHROPATHY
     Dosage: 2 DF, QD
     Route: 065
     Dates: start: 2018, end: 2018
  6. ACETYLSALICYLIC ACID [Suspect]
     Active Substance: ASPIRIN
     Indication: ISCHAEMIA
     Dosage: 100 MG, QD
     Route: 048
     Dates: start: 2019
  7. COSENTYX [Concomitant]
     Active Substance: SECUKINUMAB
     Indication: PSORIATIC ARTHROPATHY
     Dosage: 300 MG, QW, (150 MG X 2 PENS) FOR 5 WEEKS
     Route: 058
     Dates: start: 20200123
  8. COSENTYX [Concomitant]
     Active Substance: SECUKINUMAB
     Dosage: 300 MG, UNKNOWN
     Route: 065
     Dates: start: 20210806
  9. METHOTREXATE. [Concomitant]
     Active Substance: METHOTREXATE
     Indication: PRODUCT USED FOR UNKNOWN INDICATION
     Dosage: UNK
     Route: 065

REACTIONS (38)
  - Spinal disorder [Unknown]
  - Gait disturbance [Unknown]
  - Fibromyalgia [Unknown]
  - Tooth loss [Not Recovered/Not Resolved]
  - Insomnia [Unknown]
  - Drug ineffective [Recovered/Resolved]
  - Sensitive skin [Unknown]
  - Breast cancer [Unknown]
  - Depression [Not Recovered/Not Resolved]
  - Blister [Unknown]
  - Feeding disorder [Unknown]
  - Fall [Unknown]
  - Pain [Unknown]
  - Fear [Not Recovered/Not Resolved]
  - Drug intolerance [Unknown]
  - Bruxism [Unknown]
  - Psoriasis [Recovering/Resolving]
  - Skin atrophy [Unknown]
  - Memory impairment [Not Recovered/Not Resolved]
  - Toothache [Unknown]
  - Swelling [Unknown]
  - Dyspepsia [Not Recovered/Not Resolved]
  - Product use in unapproved indication [Unknown]
  - Psoriatic arthropathy [Unknown]
  - Erythema [Unknown]
  - Oedema [Unknown]
  - Vomiting [Recovered/Resolved]
  - Emotional disorder [Not Recovered/Not Resolved]
  - Syncope [Unknown]
  - Anxiety [Not Recovered/Not Resolved]
  - Swelling face [Recovering/Resolving]
  - Hepatic enzyme abnormal [Unknown]
  - Nausea [Unknown]
  - Infection [Recovering/Resolving]
  - Scab [Unknown]
  - Panic disorder [Recovered/Resolved]
  - Ischaemic stroke [Unknown]
  - Transient ischaemic attack [Unknown]

NARRATIVE: CASE EVENT DATE: 2018
